FAERS Safety Report 9043236 (Version 1)
Quarter: 2013Q1

REPORT INFORMATION
  Report Type: Report from Study
  Country: US (occurrence: US)
  Receive Date: 20130129
  Receipt Date: 20130129
  Transmission Date: 20140127
  Serious: No
  Sender: FDA-Public Use
  Company Number: US-ABBOTT-12P-163-0908607-00

PATIENT
  Age: 57 Year
  Sex: Female

DRUGS (20)
  1. HUMIRA 40 MG/0.8 ML PEN [Suspect]
     Indication: RHEUMATOID ARTHRITIS
     Dates: start: 20120110, end: 20120207
  2. HUMIRA 40 MG/0.8 ML PEN [Suspect]
     Dates: start: 20120214
  3. FOLIC ACID [Concomitant]
     Indication: NAUSEA
  4. METHOTREXATE [Concomitant]
     Indication: RHEUMATOID ARTHRITIS
     Dosage: 6 TABS WEEKLY
  5. VIT D [Concomitant]
     Indication: SUPPLEMENTATION THERAPY
  6. LEXAPRO [Concomitant]
     Indication: DEPRESSION
  7. COREG [Concomitant]
     Indication: HEART RATE INCREASED
  8. DESONIDE [Concomitant]
     Indication: PSORIASIS
     Dosage: AS NEEDED
  9. CLOBETASOL [Concomitant]
     Indication: PSORIASIS
  10. AMBIEN [Concomitant]
     Indication: SLEEP DISORDER
     Dosage: ONE AT BEDTIME
  11. ADVAIR DISC [Concomitant]
     Indication: ASTHMA
  12. SINGULAIR [Concomitant]
     Indication: ASTHMA
     Dosage: AT BEDTIME
  13. OMEPRAZOLE [Concomitant]
     Indication: GASTROOESOPHAGEAL REFLUX DISEASE
     Dosage: BEFORE BREAKFAST
  14. OMEPRAZOLE [Concomitant]
     Indication: GASTROOESOPHAGEAL REFLUX DISEASE
  15. NEURONTIN [Concomitant]
     Indication: NECK PAIN
  16. AVINZA [Concomitant]
     Indication: PAIN
  17. THEOPHYLLINE [Concomitant]
     Indication: ASTHMA
  18. VALIUM [Concomitant]
     Indication: NECK PAIN
  19. ALBUTEROL [Concomitant]
     Indication: ASTHMA
     Dosage: EVERY 4-6 HOURS
  20. OXYCODONE [Concomitant]
     Indication: RHEUMATOID ARTHRITIS
     Dosage: 1-2 TABS

REACTIONS (1)
  - Bronchitis [Recovering/Resolving]
